FAERS Safety Report 5148616-1 (Version None)
Quarter: 2006Q4

REPORT INFORMATION
  Report Type: 
  Country: None (occurrence: None)
  Receive Date: 20061107
  Receipt Date: 20061025
  Transmission Date: 20070319
  Serious: Yes (Other)
  Sender: FDA-Public Use
  Company Number: T200601227

PATIENT
  Age: 69 Year
  Sex: 0

DRUGS (1)
  1. OPTIRAY 160 [Suspect]
     Dosage: 20 ML, SINGLE, INTRAVENOUS
     Route: 042
     Dates: start: 20061012, end: 20061012

REACTIONS (2)
  - DYSPHAGIA [None]
  - URTICARIA [None]
